FAERS Safety Report 10160227 (Version 1)
Quarter: 2014Q2

REPORT INFORMATION
  Report Type: Spontaneous
  Country: GB (occurrence: GB)
  Receive Date: 20140508
  Receipt Date: 20140508
  Transmission Date: 20141212
  Serious: Yes (Other)
  Sender: FDA-Public Use
  Company Number: PHFR2014GB003278

PATIENT
  Sex: Female

DRUGS (3)
  1. CLOZAPINE [Suspect]
     Dosage: UNK
  2. CITALOPRAM [Suspect]
     Indication: DEPRESSION
     Dosage: 30 MG, DAILY
     Route: 048
  3. CITALOPRAM [Suspect]
     Dosage: 20 MG, DAILY
     Route: 048

REACTIONS (1)
  - Electrocardiogram T wave inversion [Unknown]
